FAERS Safety Report 7010216-6 (Version None)
Quarter: 2010Q3

REPORT INFORMATION
  Report Type: 
  Country: None (occurrence: None)
  Receive Date: 20100923
  Receipt Date: 20100908
  Transmission Date: 20110219
  Serious: Yes (Death)
  Sender: FDA-Public Use
  Company Number: GXKR2010GB10532

PATIENT
  Age: 29 Year
  Sex: Male

DRUGS (3)
  1. CITALOPRAM HYDROBROMIDE [Suspect]
     Route: 065
  2. CLOZAPINE [Suspect]
     Route: 065
  3. MORPHINE [Concomitant]
     Route: 065

REACTIONS (3)
  - ASPIRATION [None]
  - CHOKING [None]
  - DRUG TOXICITY [None]
